FAERS Safety Report 5454950-8 (Version None)
Quarter: 2007Q3

REPORT INFORMATION
  Report Type: 
  Country: None (occurrence: None)
  Receive Date: 20070917
  Receipt Date: 20070907
  Transmission Date: 20080115
  Serious: Yes (Other)
  Sender: FDA-Public Use
  Company Number: US-PFIZER INC-2007055745

PATIENT
  Sex: Female
  Weight: 45.454 kg

DRUGS (7)
  1. CHANTIX [Interacting]
     Indication: SMOKING CESSATION THERAPY
     Dates: start: 20060701, end: 20070101
  2. LIPITOR [Suspect]
  3. SELEGILINE HCL [Interacting]
     Indication: MENTAL DISORDER
     Dosage: TEXT:12MG
     Dates: start: 20070101, end: 20070201
  4. PLAVIX [Concomitant]
  5. ASPIRIN [Concomitant]
  6. ATACAND [Concomitant]
  7. LORAZEPAM [Concomitant]

REACTIONS (3)
  - DRUG INTERACTION [None]
  - LOSS OF CONSCIOUSNESS [None]
  - UPPER RESPIRATORY TRACT INFECTION [None]
